FAERS Safety Report 18530117 (Version 1)
Quarter: 2020Q4

REPORT INFORMATION
  Report Type: Spontaneous
  Country: SE (occurrence: SE)
  Receive Date: 20201120
  Receipt Date: 20201120
  Transmission Date: 20210114
  Serious: Yes (Life-Threatening, Hospitalization)
  Sender: FDA-Public Use
  Company Number: SE-ANIPHARMA-2020-SE-000047

PATIENT
  Age: 62 Year
  Sex: Female
  Weight: 78 kg

DRUGS (2)
  1. CANDESARTAN CILEXETIL. [Suspect]
     Active Substance: CANDESARTAN CILEXETIL
     Indication: HYPERTENSION
     Dosage: 32 MG UNK
     Route: 048
     Dates: start: 20171015, end: 20200623
  2. PANODIL [Concomitant]
     Active Substance: ACETAMINOPHEN
     Dosage: UNKNOWN DOSE AND FREQUENCY
     Route: 065
     Dates: start: 2015

REACTIONS (5)
  - Abdominal pain [Recovered/Resolved with Sequelae]
  - Pruritus [Recovered/Resolved with Sequelae]
  - Swelling face [Recovered/Resolved with Sequelae]
  - Rash [Recovered/Resolved with Sequelae]
  - Vomiting projectile [Recovered/Resolved with Sequelae]

NARRATIVE: CASE EVENT DATE: 20190906
